FAERS Safety Report 4952644-6 (Version None)
Quarter: 2006Q1

REPORT INFORMATION
  Report Type: 
  Country: None (occurrence: None)
  Receive Date: 20060320
  Receipt Date: 20060314
  Transmission Date: 20060701
  Serious: Yes (Other)
  Sender: FDA-Public Use
  Company Number: 2006-03-0774

PATIENT

DRUGS (1)
  1. PEG-INTRON [Suspect]

REACTIONS (1)
  - NEOPLASM MALIGNANT [None]
